FAERS Safety Report 4782210-7 (Version None)
Quarter: 2005Q3

REPORT INFORMATION
  Report Type: 
  Country: None (occurrence: None)
  Receive Date: 20050927
  Receipt Date: 20050615
  Transmission Date: 20060218
  Serious: No
  Sender: FDA-Public Use
  Company Number: USA030330227

PATIENT
  Age: 11 Year
  Sex: Male
  Weight: 38 kg

DRUGS (3)
  1. STRATTERA [Suspect]
     Indication: ATTENTION DEFICIT/HYPERACTIVITY DISORDER
     Dosage: 25 MG DAY
     Dates: start: 20030228
  2. RISPERDAL [Concomitant]
  3. TRILEPTAL [Concomitant]

REACTIONS (4)
  - DRUG EFFECT DECREASED [None]
  - NERVOUSNESS [None]
  - SOMNOLENCE [None]
  - WEIGHT INCREASED [None]
